FAERS Safety Report 10658272 (Version 9)
Quarter: 2015Q3

REPORT INFORMATION
  Report Type: Report from Study
  Country: US (occurrence: US)
  Receive Date: 20141217
  Receipt Date: 20150803
  Transmission Date: 20151125
  Serious: Yes (Hospitalization)
  Sender: FDA-Public Use
  Company Number: US-ACTELION-A-US2014-109864

PATIENT
  Age: 55 Year
  Sex: Female

DRUGS (4)
  1. VENTAVIS [Suspect]
     Active Substance: ILOPROST
     Indication: PULMONARY HYPERTENSION
     Dosage: 5 MCG, 6-9 X/DAILY
     Route: 055
     Dates: start: 20140721, end: 20150415
  2. ADCIRCA [Concomitant]
     Active Substance: TADALAFIL
  3. LETAIRIS [Concomitant]
     Active Substance: AMBRISENTAN
     Dosage: UNK
     Dates: end: 20150415
  4. VENTAVIS [Suspect]
     Active Substance: ILOPROST
     Dosage: 2.5 MCG, 6-9 X/DAILY
     Route: 055

REACTIONS (10)
  - Haemorrhage [Unknown]
  - Mouth haemorrhage [Unknown]
  - Liver transplant [Unknown]
  - Blood count abnormal [Unknown]
  - Haematochezia [Unknown]
  - Epistaxis [Unknown]
  - Liver disorder [Unknown]
  - Ammonia increased [Unknown]
  - Lethargy [Unknown]
  - Confusional state [Unknown]

NARRATIVE: CASE EVENT DATE: 20150422
